FAERS Safety Report 9244051 (Version 1)
Quarter: 2013Q1

REPORT INFORMATION
  Report Type: Spontaneous
  Country: US (occurrence: None)
  Receive Date: 20121123
  Receipt Date: 20121123
  Transmission Date: 20140127
  Serious: No
  Sender: FDA-Public Use
  Company Number: 362628

PATIENT
  Age: 47 Year
  Sex: Female

DRUGS (1)
  1. VICTOZA (LIRAGLUTIDE) SOLUTION FOR INJECTION, 6MG/ML [Suspect]
     Indication: TYPE 2 DIABETES MELLITUS
     Route: 058
     Dates: start: 20121015, end: 20121021

REACTIONS (6)
  - Heart rate increased [None]
  - Nausea [None]
  - Headache [None]
  - Increased appetite [None]
  - Weight decreased [None]
  - Blood glucose increased [None]
